FAERS Safety Report 5065982-6 (Version None)
Quarter: 2006Q3

REPORT INFORMATION
  Report Type: 
  Country: None (occurrence: None)
  Receive Date: 20060728
  Receipt Date: 20060728
  Transmission Date: 20061208
  Serious: Yes (Life-Threatening, Hospitalization)
  Sender: FDA-Public Use
  Company Number: None

PATIENT
  Sex: Male
  Weight: 103 kg

DRUGS (5)
  1. ERBITUX [Suspect]
     Indication: COLON CANCER METASTATIC
     Dosage: 28.4 MG  ONCE  IV
     Route: 042
     Dates: start: 20060725, end: 20060725
  2. BENADRYL [Concomitant]
  3. ALTACE [Concomitant]
  4. TOPROL-XL [Concomitant]
  5. ASPIRIN [Concomitant]

REACTIONS (17)
  - APNOEIC ATTACK [None]
  - BLOOD PRESSURE IMMEASURABLE [None]
  - CONVULSION [None]
  - CYANOSIS [None]
  - DYSPHORIA [None]
  - DYSPNOEA [None]
  - HYPERHIDROSIS [None]
  - HYPOTENSION [None]
  - INFUSION RELATED REACTION [None]
  - MALAISE [None]
  - OXYGEN SATURATION IMMEASURABLE [None]
  - PRURITUS [None]
  - PULSE ABSENT [None]
  - RASH ERYTHEMATOUS [None]
  - SWOLLEN TONGUE [None]
  - UNRESPONSIVE TO STIMULI [None]
  - VOMITING [None]
